FAERS Safety Report 7980568-9 (Version None)
Quarter: 2011Q4

REPORT INFORMATION
  Report Type: 
  Country: None (occurrence: None)
  Receive Date: 20111214
  Receipt Date: 20111207
  Transmission Date: 20120403
  Serious: Yes (Hospitalization)
  Sender: FDA-Public Use
  Company Number: FR-PFIZER INC-K201100720

PATIENT
  Age: 77 Year
  Sex: Female

DRUGS (4)
  1. LEVOTHYROXINE [Concomitant]
     Dosage: UNK
     Dates: start: 20091101
  2. IBUPROFEN [Concomitant]
     Dosage: UNK
  3. RAMIPRIL [Suspect]
     Indication: HYPERTENSION
     Dosage: 2.5 MG, 1X/DAY
     Route: 048
     Dates: start: 20090101, end: 20110527
  4. ZINC GLUCONATE [Suspect]
     Indication: PROPHYLAXIS
     Dosage: 1 DF, 3X/DAY
     Route: 048
     Dates: start: 20110510, end: 20110524

REACTIONS (6)
  - AGEUSIA [None]
  - CIRCULATORY COLLAPSE [None]
  - DYSGEUSIA [None]
  - RESPIRATORY TRACT INFECTION [None]
  - ANOSMIA [None]
  - DIARRHOEA [None]
